FAERS Safety Report 4782119-9 (Version None)
Quarter: 2005Q3

REPORT INFORMATION
  Report Type: 
  Country: None (occurrence: None)
  Receive Date: 20050914
  Receipt Date: 20040817
  Transmission Date: 20060218
  Serious: Yes (Other)
  Sender: FDA-Public Use
  Company Number: 163-20785-04080335

PATIENT
  Age: 14 Year
  Sex: Male

DRUGS (4)
  1. THALOMID [Suspect]
     Indication: JUVENILE ARTHRITIS
     Dosage: 200 MG, DAILY, ORAL
     Route: 048
     Dates: start: 20030901
  2. CELEBREX [Concomitant]
  3. LISINOPRIL [Concomitant]
  4. PROCARDIA [Concomitant]

REACTIONS (9)
  - BLOOD PRESSURE DECREASED [None]
  - DIPLOPIA [None]
  - DIZZINESS [None]
  - GAIT DISTURBANCE [None]
  - LOSS OF CONSCIOUSNESS [None]
  - NAUSEA [None]
  - TONGUE BITING [None]
  - VISION BLURRED [None]
  - VOMITING [None]
